FAERS Safety Report 6709372-6 (Version None)
Quarter: 2010Q2

REPORT INFORMATION
  Report Type: 
  Country: None (occurrence: None)
  Receive Date: 20100504
  Receipt Date: 20090702
  Transmission Date: 20101027
  Serious: Yes (Other)
  Sender: FDA-Public Use
  Company Number: US-BAYER-200912239BCC

PATIENT
  Age: 57 Year
  Sex: Female
  Weight: 70 kg

DRUGS (9)
  1. BAYER QUICK RELEASE CRYSTALS [Suspect]
     Indication: MIGRAINE
     Dosage: TOTAL DAILY DOSE: 1 DF  UNIT DOSE: 1 DF
     Route: 048
     Dates: start: 20090701
  2. SEED OIL [Concomitant]
     Route: 065
  3. MEDROXYPROGESTERONE [Concomitant]
     Route: 065
  4. DIPHENHYDRAMINE [Concomitant]
     Route: 065
  5. OXYCODONE [Concomitant]
     Route: 065
  6. VITAMIN D3 [Concomitant]
     Route: 065
  7. ESTER C [Concomitant]
     Route: 065
  8. VITAMIN B COMPLEX CAP [Concomitant]
     Route: 065
  9. BETA CAROTENE [Concomitant]
     Route: 065

REACTIONS (3)
  - DYSKINESIA [None]
  - FEELING JITTERY [None]
  - HEADACHE [None]
